FAERS Safety Report 14473569 (Version 1)
Quarter: 2018Q1

REPORT INFORMATION
  Report Type: Spontaneous
  Country: US (occurrence: US)
  Receive Date: 20180131
  Receipt Date: 20180131
  Transmission Date: 20180509
  Serious: No
  Sender: FDA-Public Use
  Company Number: None

PATIENT
  Age: 61 Year
  Sex: Male

DRUGS (1)
  1. TEMOZOLOMIDE CAP 180MG [Suspect]
     Active Substance: TEMOZOLOMIDE

REACTIONS (2)
  - Diarrhoea [None]
  - Unevaluable event [None]

NARRATIVE: CASE EVENT DATE: 20180116
